FAERS Safety Report 8067873-5 (Version None)
Quarter: 2012Q1

REPORT INFORMATION
  Report Type: 
  Country: None (occurrence: None)
  Receive Date: 20120124
  Receipt Date: 20110829
  Transmission Date: 20120608
  Serious: No
  Sender: FDA-Public Use
  Company Number: US-AMGEN-USASP2011035664

PATIENT
  Sex: Female

DRUGS (2)
  1. PROLIA [Suspect]
     Indication: OSTEOPOROSIS POSTMENOPAUSAL
     Dosage: 60 MG, UNK
     Dates: start: 20110711
  2. ANTIHYPERTENSIVES [Concomitant]

REACTIONS (5)
  - DIZZINESS [None]
  - BLOOD PRESSURE INCREASED [None]
  - MALAISE [None]
  - ARTHRALGIA [None]
  - MYALGIA [None]
